FAERS Safety Report 18684435 (Version 1)
Quarter: 2020Q4

REPORT INFORMATION
  Report Type: Report from Study
  Country: TH (occurrence: TH)
  Receive Date: 20201230
  Receipt Date: 20201230
  Transmission Date: 20210114
  Serious: Yes (Other)
  Sender: FDA-Public Use
  Company Number: NVSC2020TH196821

PATIENT
  Sex: Female

DRUGS (1)
  1. AFINITOR [Suspect]
     Active Substance: EVEROLIMUS
     Indication: BREAST CANCER METASTATIC
     Dosage: UNK
     Route: 065

REACTIONS (10)
  - Neoplasm malignant [Recovering/Resolving]
  - Tumour marker increased [Unknown]
  - Renal failure [Recovered/Resolved]
  - Mouth ulceration [Recovered/Resolved]
  - Diarrhoea [Recovered/Resolved]
  - Renal function test abnormal [Recovered/Resolved]
  - Blood potassium increased [Unknown]
  - Pain [Unknown]
  - Blood glucose increased [Recovered/Resolved]
  - Diarrhoea [Unknown]
